FAERS Safety Report 9210609 (Version 1)
Quarter: 2013Q2

REPORT INFORMATION
  Report Type: Spontaneous
  Country: US (occurrence: US)
  Receive Date: 20130404
  Receipt Date: 20130404
  Transmission Date: 20140414
  Serious: Yes (Other)
  Sender: FDA-Public Use
  Company Number: CHPA2013US005589

PATIENT
  Age: 10 Year
  Sex: Male

DRUGS (1)
  1. GAS-X [Suspect]
     Indication: ABDOMINAL DISCOMFORT
     Dosage: 1 DF, ONCE/SINGLE
     Route: 048
     Dates: start: 20130327, end: 20130327

REACTIONS (3)
  - Blood glucose increased [Recovered/Resolved]
  - Concomitant disease aggravated [Recovered/Resolved]
  - Expired drug administered [Unknown]
